FAERS Safety Report 6753034-6 (Version None)
Quarter: 2010Q2

REPORT INFORMATION
  Report Type: 
  Country: None (occurrence: None)
  Receive Date: 20100603
  Receipt Date: 20100525
  Transmission Date: 20101027
  Serious: Yes (Life-Threatening, Hospitalization)
  Sender: FDA-Public Use
  Company Number: BR-JNJFOC-20100510151

PATIENT
  Age: 40 Year
  Sex: Male

DRUGS (2)
  1. REMICADE [Suspect]
     Indication: PSORIATIC ARTHROPATHY
     Route: 042
  2. METHOTREXATE [Concomitant]

REACTIONS (4)
  - PSORIATIC ARTHROPATHY [None]
  - PYREXIA [None]
  - RENAL NEOPLASM [None]
  - RESPIRATORY DISORDER [None]
